FAERS Safety Report 9494845 (Version 1)
Quarter: 2013Q3

REPORT INFORMATION
  Report Type: Spontaneous
  Country: US (occurrence: US)
  Receive Date: 20130903
  Receipt Date: 20130903
  Transmission Date: 20140515
  Serious: No
  Sender: FDA-Public Use
  Company Number: US-TEVA-429188USA

PATIENT
  Age: 33 Year
  Sex: Male
  Weight: 77.18 kg

DRUGS (1)
  1. NUVIGIL [Suspect]
     Indication: NARCOLEPSY
     Dates: start: 20130816

REACTIONS (7)
  - Euphoric mood [Unknown]
  - Euphoric mood [Unknown]
  - Aggression [Unknown]
  - Fear [Unknown]
  - Depressed mood [Unknown]
  - Frustration [Unknown]
  - Extra dose administered [Unknown]
